FAERS Safety Report 6052724-0 (Version None)
Quarter: 2009Q1

REPORT INFORMATION
  Report Type: 
  Country: None (occurrence: None)
  Receive Date: 20090127
  Receipt Date: 20090121
  Transmission Date: 20090719
  Serious: Yes (Congenital Anomaly)
  Sender: FDA-Public Use
  Company Number: GB-BRISTOL-MYERS SQUIBB COMPANY-13536719

PATIENT
  Age: 24 Year
  Sex: Female

DRUGS (6)
  1. ATAZANAVIR [Suspect]
     Indication: HIV TEST POSITIVE
     Route: 048
     Dates: start: 20010101
  2. TENOFOVIR DISOPROXIL FUMARATE [Suspect]
     Dosage: 1 DOSAGE FORM = 300(UNIT IS NOT MENTIONED)
     Route: 048
  3. COMBIVIR [Suspect]
     Route: 048
  4. RITONAVIR [Suspect]
     Dosage: 1 DOSAGE FORM= 100(UNIT IS NOT MENTIONED)
     Route: 048
  5. DAPSONE [Suspect]
     Indication: HIV TEST POSITIVE
     Route: 048
     Dates: start: 20010101
  6. ASASANTIN RETARD [Concomitant]
     Route: 048

REACTIONS (3)
  - DRUG EXPOSURE DURING PREGNANCY [None]
  - HYDROCEPHALUS [None]
  - PREGNANCY [None]
